FAERS Safety Report 6527788-8 (Version None)
Quarter: 2010Q1

REPORT INFORMATION
  Report Type: 
  Country: None (occurrence: None)
  Receive Date: 20100106
  Receipt Date: 20100104
  Transmission Date: 20100710
  Serious: Yes (Other)
  Sender: FDA-Public Use
  Company Number: US-ROCHE-409560

PATIENT
  Sex: Female

DRUGS (18)
  1. PEGASYS [Suspect]
     Indication: HEPATITIS C
     Route: 058
     Dates: start: 20041029, end: 20050701
  2. PEGASYS [Suspect]
     Dosage: EXPIRY DATE FOR BATCH B1093-01:30 JUNE 2010; FORM:PFS, MISSED ONE DOSE.
     Route: 058
     Dates: start: 20080316
  3. PEGASYS [Suspect]
     Route: 058
  4. COPEGUS [Suspect]
     Indication: HEPATITIS C
     Route: 048
     Dates: start: 20041029, end: 20050701
  5. COPEGUS [Suspect]
     Route: 048
  6. RIBAVIRIN [Suspect]
     Indication: HEPATITIS C
     Dosage: MISSED FIVE DAYS OF RIBAVIRIN.
     Route: 065
     Dates: start: 20080316
  7. PEG-INTRON [Suspect]
     Indication: HEPATITIS C
     Route: 065
  8. RIBASPHERE [Suspect]
     Indication: HEPATITIS C
     Route: 065
  9. ONDANSETRON [Concomitant]
  10. EFFEXOR [Concomitant]
  11. ATIVAN [Concomitant]
  12. VITAMINS NOS [Concomitant]
  13. LECITHIN [Concomitant]
  14. CALCIUM [Concomitant]
  15. VITAMIN E [Concomitant]
  16. STROVITE [Concomitant]
  17. NEULASTA [Concomitant]
     Dosage: MISSED ONE DOSE.
  18. MAGNESIUM [Concomitant]

REACTIONS (22)
  - ANAEMIA [None]
  - CONTUSION [None]
  - DECREASED APPETITE [None]
  - DENTAL CARIES [None]
  - DEPRESSION [None]
  - DIARRHOEA [None]
  - DIZZINESS [None]
  - DRUG DOSE OMISSION [None]
  - EAR PAIN [None]
  - FACIAL PALSY [None]
  - FALL [None]
  - FATIGUE [None]
  - HEAD INJURY [None]
  - INSOMNIA [None]
  - LIMB INJURY [None]
  - NASOPHARYNGITIS [None]
  - NAUSEA [None]
  - ORAL DISORDER [None]
  - OROPHARYNGEAL PAIN [None]
  - VOMITING [None]
  - WEIGHT DECREASED [None]
  - WHITE BLOOD CELL COUNT DECREASED [None]
